FAERS Safety Report 8322623-X (Version None)
Quarter: 2012Q2

REPORT INFORMATION
  Report Type: 
  Country: None (occurrence: None)
  Receive Date: 20120426
  Receipt Date: 20120416
  Transmission Date: 20120825
  Serious: Yes (Other)
  Sender: FDA-Public Use
  Company Number: DSA_56222_2012

PATIENT
  Sex: Male

DRUGS (31)
  1. FEXOFENADINE [Concomitant]
  2. DOXYCYCLINE [Concomitant]
  3. INFLUENZA VACCINE (UNKNOWN) [Concomitant]
  4. TRIAMCINOLONE (UNKNOWN) [Concomitant]
  5. NAPROXEN [Concomitant]
  6. BLEOMYCIN (UNKNOWN) [Concomitant]
  7. CLOETASOL (UNKNOWN) [Concomitant]
  8. FLUOCINONIDE (UNKNOWN) [Concomitant]
  9. RABEPRAZOLE (UNKNOWN) [Concomitant]
  10. OLOPATADINE (UNKNOWN) [Concomitant]
  11. KYTRIL (UNKNOWN) [Concomitant]
  12. PROTOPIC (UNKNOWN) [Concomitant]
  13. BENADRYL /00000402/ (UNKNOWN) [Concomitant]
  14. HYDROCODONE W/APAP  /01554201/ (UNKNOWN) [Concomitant]
  15. VINCRISTINE [Concomitant]
  16. ALLEGRA (UNKNOWN) [Concomitant]
  17. FLONASE (UNKNOWN) [Concomitant]
  18. TACROLIMUS [Concomitant]
  19. SERTRALINE HYDROCHLORIDE [Concomitant]
  20. TYLENOL W/CODEINE NO. 3 (UNKNOWN) [Concomitant]
  21. TAC (UNKNOWN) [Concomitant]
  22. DOXORUBICIN HCL [Concomitant]
  23. DECADRON /00016001/ (UNKNOWN) [Concomitant]
  24. ETOPOSIDE [Concomitant]
  25. DOXEPIN (UNKNOWN) [Concomitant]
  26. CHEMOTHERAPEUTICS (UNKNOWN) [Concomitant]
  27. RADIATION THERAPY [Concomitant]
  28. NITROGEN MUSTARD (UNKNOWN) [Concomitant]
  29. ELIDEL [Suspect]
     Indication: ECZEMA
     Dosage: (DF TOPICAL)
     Dates: start: 20030101
  30. IBUPROFEN [Concomitant]
  31. QUINODERM CREAM WITH HYDROCORTISONE (UNKNOWN) [Concomitant]

REACTIONS (21)
  - FOREARM FRACTURE [None]
  - HODGKIN'S DISEASE [None]
  - OESOPHAGITIS [None]
  - LYMPHADENOPATHY [None]
  - PARAESTHESIA [None]
  - NEUROPATHY PERIPHERAL [None]
  - SINUS HEADACHE [None]
  - PRURITUS [None]
  - CONFUSIONAL STATE [None]
  - DYSPNOEA [None]
  - HYPOAESTHESIA [None]
  - DISTURBANCE IN ATTENTION [None]
  - AMNESIA [None]
  - CHEST PAIN [None]
  - BLOOD GLUCOSE INCREASED [None]
  - RASH [None]
  - CORNEAL ABRASION [None]
  - HEADACHE [None]
  - JOINT DISLOCATION [None]
  - SOMNOLENCE [None]
  - FOREIGN BODY IN EYE [None]
